FAERS Safety Report 15661684 (Version 2)
Quarter: 2020Q1

REPORT INFORMATION
  Report Type: Report from Study
  Country: JP (occurrence: JP)
  Receive Date: 20181127
  Receipt Date: 20200227
  Transmission Date: 20200409
  Serious: Yes (Hospitalization)
  Sender: FDA-Public Use
  Company Number: JP-BAYER-2017-102435

PATIENT
  Age: 55 Year
  Sex: Female
  Weight: 46 kg

DRUGS (10)
  1. ADEMPAS [Suspect]
     Active Substance: RIOCIGUAT
     Indication: PULMONARY HYPERTENSION
     Dosage: 6 MG, QD
     Route: 048
     Dates: start: 20150722, end: 20150804
  2. ADEMPAS [Suspect]
     Active Substance: RIOCIGUAT
     Indication: PULMONARY HYPERTENSION
     Dosage: 6 MG, QD
     Route: 048
     Dates: start: 20150819, end: 20160202
  3. ADEMPAS [Suspect]
     Active Substance: RIOCIGUAT
     Indication: PULMONARY HYPERTENSION
     Dosage: DAILY DOSE 4 MG
     Route: 048
     Dates: start: 20160203, end: 20160426
  4. ADEMPAS [Suspect]
     Active Substance: RIOCIGUAT
     Indication: PULMONARY HYPERTENSION
     Dosage: 7.5 MG, QD
     Route: 048
     Dates: start: 20150805, end: 20150818
  5. ADEMPAS [Suspect]
     Active Substance: RIOCIGUAT
     Indication: PULMONARY HYPERTENSION
     Dosage: 4.5 MG, QD
     Route: 048
     Dates: start: 20150708, end: 20150721
  6. WARFARIN POTASSIUM [Concomitant]
     Active Substance: WARFARIN POTASSIUM
     Dosage: DAILY DOSE 2.5 MG
     Route: 048
  7. ADEMPAS [Suspect]
     Active Substance: RIOCIGUAT
     Indication: PULMONARY HYPERTENSION
     Dosage: 3 MG, QD
     Route: 048
     Dates: start: 20150605, end: 20150707
  8. ADEMPAS [Suspect]
     Active Substance: RIOCIGUAT
     Indication: PULMONARY HYPERTENSION
     Dosage: DAILY DOSE 4 MG
     Route: 048
     Dates: start: 20160517
  9. CRESTOR [Concomitant]
     Active Substance: ROSUVASTATIN CALCIUM
     Dosage: DAILY DOSE 2.5 MG
     Route: 048
  10. TAKEPRON [Concomitant]
     Active Substance: LANSOPRAZOLE
     Dosage: DAILY DOSE 30 MG
     Route: 048

REACTIONS (10)
  - Headache [Recovered/Resolved]
  - Syncope [Recovered/Resolved]
  - Contusion [Recovered/Resolved]
  - Haematoma [Recovered/Resolved]
  - Syncope [Recovered/Resolved]
  - Dyspepsia [Recovered/Resolved]
  - Malaise [Recovered/Resolved]
  - Dyspepsia [Recovered/Resolved]
  - Dyspnoea [Recovered/Resolved]
  - Product dose omission [None]

NARRATIVE: CASE EVENT DATE: 20150605
